FAERS Safety Report 5576396-4 (Version None)
Quarter: 2007Q4

REPORT INFORMATION
  Report Type: 
  Country: None (occurrence: None)
  Receive Date: 20071228
  Receipt Date: 20071219
  Transmission Date: 20080405
  Serious: Yes (Other)
  Sender: FDA-Public Use
  Company Number: GB-ASTRAZENECA-2007SE06780

PATIENT
  Age: 66 Year
  Sex: Male

DRUGS (1)
  1. AMIAS [Suspect]
     Route: 048

REACTIONS (1)
  - ALOPECIA [None]
